FAERS Safety Report 9492115 (Version 3)
Quarter: 2014Q1

REPORT INFORMATION
  Report Type: Spontaneous
  Country: US (occurrence: US)
  Receive Date: 20130830
  Receipt Date: 20140304
  Transmission Date: 20141002
  Serious: Yes (Hospitalization, Other)
  Sender: FDA-Public Use
  Company Number: US-ASTRAZENECA-2013SE65343

PATIENT
  Age: 84 Year
  Sex: Female
  Weight: 64 kg

DRUGS (18)
  1. NEXIUM [Suspect]
     Indication: GASTROOESOPHAGEAL REFLUX DISEASE
     Route: 048
     Dates: start: 2004
  2. NEXIUM [Suspect]
     Indication: GASTROOESOPHAGEAL REFLUX DISEASE
     Route: 048
     Dates: end: 201307
  3. NEXIUM [Suspect]
     Indication: GASTROOESOPHAGEAL REFLUX DISEASE
     Route: 048
     Dates: start: 201307, end: 201307
  4. NEXIUM [Suspect]
     Indication: GASTROOESOPHAGEAL REFLUX DISEASE
     Route: 048
     Dates: start: 201307
  5. NEXIUM [Suspect]
     Indication: GASTROOESOPHAGEAL REFLUX DISEASE
     Dosage: DAILY
     Route: 048
     Dates: start: 2004
  6. PRILOSEC OTC [Suspect]
     Indication: GASTROOESOPHAGEAL REFLUX DISEASE
     Route: 048
     Dates: start: 20131218
  7. PRILOSEC OTC [Suspect]
     Indication: FLATULENCE
     Route: 048
     Dates: start: 20131218
  8. PRILOSEC OTC [Suspect]
     Indication: GASTROOESOPHAGEAL REFLUX DISEASE
     Route: 048
  9. PRILOSEC OTC [Suspect]
     Indication: FLATULENCE
     Route: 048
  10. PRILOSEC(UNSPECIFIED) [Suspect]
     Indication: FLATULENCE
     Route: 048
  11. VITAMIN B12 [Concomitant]
     Indication: VITAMIN SUPPLEMENTATION
  12. VITAMIN D3 [Concomitant]
  13. FISH OIL [Concomitant]
  14. CALCIUM [Concomitant]
  15. MULTIVITAMINS [Concomitant]
     Dosage: DAILY
  16. STOOL SOFTENER [Concomitant]
     Dosage: PRN
  17. TYLENOL [Concomitant]
     Dosage: PRN
  18. GABAPENTIN [Concomitant]
     Indication: TOOTHACHE

REACTIONS (33)
  - Abdominal pain upper [Unknown]
  - Flatulence [Recovered/Resolved]
  - Eructation [Recovered/Resolved]
  - Cataract [Unknown]
  - Spinal fracture [Unknown]
  - Hiatus hernia [Not Recovered/Not Resolved]
  - Renal cyst [Not Recovered/Not Resolved]
  - Dyspepsia [Unknown]
  - Oral pain [Unknown]
  - Oedema mouth [Unknown]
  - Oesophageal pain [Unknown]
  - Musculoskeletal chest pain [Unknown]
  - Back pain [Unknown]
  - Sleep disorder due to a general medical condition [Unknown]
  - Thought blocking [Unknown]
  - Diarrhoea [Unknown]
  - Gastrointestinal pain [Unknown]
  - Oropharyngeal pain [Unknown]
  - Urinary incontinence [Not Recovered/Not Resolved]
  - Amnesia [Unknown]
  - Myalgia [Unknown]
  - Peripheral nerve lesion [Unknown]
  - Eye disorder [Unknown]
  - Visual impairment [Unknown]
  - Toothache [Unknown]
  - Hyperchlorhydria [Unknown]
  - Hiatus hernia [Unknown]
  - Barrett^s oesophagus [Unknown]
  - Polyp [Unknown]
  - Abdominal pain upper [Unknown]
  - Off label use [Unknown]
  - Intentional drug misuse [Unknown]
  - Drug ineffective [Unknown]
